FAERS Safety Report 8575366-1 (Version None)
Quarter: 2012Q3

REPORT INFORMATION
  Report Type: 
  Country: None (occurrence: None)
  Receive Date: 20120807
  Receipt Date: 20120801
  Transmission Date: 20120928
  Serious: No
  Sender: FDA-Public Use
  Company Number: US-PFIZER INC-2012147419

PATIENT
  Sex: Female

DRUGS (10)
  1. LIPITOR [Suspect]
     Dosage: 40 MG, UNK
     Route: 048
     Dates: start: 20051210, end: 20060517
  2. VICODIN [Concomitant]
     Dosage: 5/500 MG EVERY FOUR HOUR AS NEEDED
     Route: 048
  3. ZOLOFT [Concomitant]
     Dosage: 200 MG, 1X/DAY
     Route: 048
  4. LIPITOR [Suspect]
     Indication: HYPERLIPIDAEMIA
     Dosage: 20 MG, UNK
     Route: 048
     Dates: start: 20040406, end: 20051209
  5. FLEXERIL [Concomitant]
     Dosage: 10 MG, 2X/DAY
     Route: 048
  6. LORAZEPAM [Concomitant]
     Dosage: 0.5 MG, 2X/DAY
     Route: 048
  7. NEXIUM [Concomitant]
     Dosage: 40 MG, 1X/DAY
     Route: 048
  8. PREMPRO [Concomitant]
     Dosage: 0.625/2.5 MG 1X/DAY
  9. PRAVACHOL [Concomitant]
     Dosage: 40 MG, AT BEDTIME
     Route: 048
  10. CYMBALTA [Concomitant]
     Dosage: UNK

REACTIONS (3)
  - MUSCLE SPASMS [None]
  - SLEEP DISORDER [None]
  - DRUG HYPERSENSITIVITY [None]
